FAERS Safety Report 5308970-4 (Version None)
Quarter: 2007Q2

REPORT INFORMATION
  Report Type: 
  Country: None (occurrence: None)
  Receive Date: 20070426
  Receipt Date: 20070417
  Transmission Date: 20071010
  Serious: Yes (Hospitalization)
  Sender: FDA-Public Use
  Company Number: CA-BOEHRINGER INGELHEIM PHARMACEUTICALS, INC.-2007-CN-00239CN

PATIENT
  Sex: Male
  Weight: 66 kg

DRUGS (16)
  1. TIPRANAVIR + RITONAVIR CO-ADMIN [Suspect]
     Indication: HIV INFECTION
     Route: 048
     Dates: start: 20050516, end: 20060511
  2. EFFEXOR XR [Concomitant]
  3. PANTOPRAZOLE SODIUM [Concomitant]
  4. COUMADIN [Concomitant]
     Dates: start: 19900101
  5. COUMADIN [Concomitant]
  6. METOPROLOL SUCCINATE [Concomitant]
     Indication: HYPERTENSION
  7. PERINDOPRIL ERBUMINE [Concomitant]
     Indication: HYPERTENSION
  8. LANOXIN [Concomitant]
  9. OXAZEPAM [Concomitant]
  10. OXAZEPAM [Concomitant]
  11. TEMAZEPAM [Concomitant]
  12. DILAUDID [Concomitant]
  13. NORVIR SEC [Concomitant]
  14. LAMIVUDINE [Concomitant]
  15. VIREAD [Concomitant]
  16. FUZEON [Concomitant]
     Route: 058

REACTIONS (1)
  - PNEUMONIA [None]
